FAERS Safety Report 4623175-8 (Version None)
Quarter: 2005Q1

REPORT INFORMATION
  Report Type: 
  Country: None (occurrence: None)
  Receive Date: 20050329
  Receipt Date: 20050314
  Transmission Date: 20050727
  Serious: Yes (Life-Threatening, Hospitalization, Other)
  Sender: FDA-Public Use
  Company Number: A017385

PATIENT
  Age: 49 Year
  Sex: Male
  Weight: 86.1834 kg

DRUGS (12)
  1. ZITHROMAC (CAPS) (AZITHROMYCIN) [Suspect]
     Indication: UPPER RESPIRATORY TRACT INFECTION
     Dosage: 250 MG (250 MG, 1 IN 1 D), ORAL
     Route: 048
     Dates: start: 20000316, end: 20000320
  2. BEXTRA [Suspect]
     Indication: PAIN
     Dosage: 10 MG (10 MG, 1 IN 1 D), ORAL
     Route: 048
     Dates: start: 20040101, end: 20040101
  3. ACYCLOVIR [Suspect]
     Indication: VIRAL INFECTION
     Dosage: INTRAVENOUS
     Route: 042
     Dates: start: 20000301, end: 20000401
  4. ERYTHROMYCIN [Suspect]
     Indication: UPPER RESPIRATORY TRACT INFECTION
     Dates: start: 20000201
  5. AXOTAL (OLD FORM) (BUTALBITAL, CAFFEINE, PARACETAMOL) [Concomitant]
  6. METOPROLOL TARTRATE [Concomitant]
  7. AMLODIPINE BESYLATE [Concomitant]
  8. FLUVASTATIN (FLUVASTATIN) [Concomitant]
  9. ALPRAZOLAM [Concomitant]
  10. NAPROXEN SODIUM [Concomitant]
  11. ACETAMINOPHEN [Concomitant]
  12. ASPIRIN [Concomitant]

REACTIONS (14)
  - ASTHENIA [None]
  - DIZZINESS [None]
  - DRUG EFFECT DECREASED [None]
  - DRUG INEFFECTIVE [None]
  - FALL [None]
  - HAEMANGIOMA [None]
  - HYPOAESTHESIA [None]
  - MYELITIS TRANSVERSE [None]
  - MYELOPATHY [None]
  - NAUSEA [None]
  - SINUS DISORDER [None]
  - SPINAL DISORDER [None]
  - TENDONITIS [None]
  - VIRAL INFECTION [None]
